FAERS Safety Report 4658682-5 (Version None)
Quarter: 2005Q2

REPORT INFORMATION
  Report Type: 
  Country: None (occurrence: None)
  Receive Date: 20050509
  Receipt Date: 20050428
  Transmission Date: 20051028
  Serious: Yes (Hospitalization)
  Sender: FDA-Public Use
  Company Number: S05-FRA-01657-01

PATIENT
  Age: 51 Year
  Sex: Female

DRUGS (4)
  1. CITALOPRAM HYDROBROMIDE [Suspect]
     Dosage: 40 MG QD PO
     Route: 048
     Dates: start: 20040116
  2. ARIMIDEX [Suspect]
     Indication: BREAST CANCER
     Dosage: 1 UNK QD PO
     Route: 048
     Dates: start: 20000509
  3. URBANYL (CLOBAZAM) [Concomitant]
  4. LEXOMIL (BROMAZEPAM) [Concomitant]

REACTIONS (6)
  - ABDOMINAL PAIN [None]
  - ENDOMETRIAL ATROPHY [None]
  - HYSTERECTOMY [None]
  - METRORRHAGIA [None]
  - SALPINGO-OOPHORECTOMY [None]
  - UTERINE CERVIX ATROPHY [None]
